FAERS Safety Report 4630336-0 (Version None)
Quarter: 2005Q2

REPORT INFORMATION
  Report Type: 
  Country: None (occurrence: None)
  Receive Date: 20050406
  Receipt Date: 20050324
  Transmission Date: 20051028
  Serious: Yes (Hospitalization, Other)
  Sender: FDA-Public Use
  Company Number: USA-2004-0015726

PATIENT
  Age: 40 Year
  Sex: Male
  Weight: 151.5 kg

DRUGS (10)
  1. OXYCONTIN [Suspect]
     Indication: PAIN
     Dosage: SEE IMAGE
     Route: 048
  2. GLYBURIDE [Concomitant]
  3. HYDRODIURIL [Concomitant]
  4. NORCO [Concomitant]
  5. HYDROCODEINE [Concomitant]
  6. NORVASC [Concomitant]
  7. INSULIN HUMULIN 70/30 (INSULIN HUMAN, INSULIN HUMAN INJECTION, ISOPHAN [Concomitant]
  8. GLUCOPHAGE [Concomitant]
  9. CARDIZEM [Concomitant]
  10. HYDROCHLOROTHIAZIDE [Concomitant]

REACTIONS (35)
  - ANXIETY [None]
  - ASTHENIA [None]
  - BACK PAIN [None]
  - CHEST PAIN [None]
  - CHEST WALL PAIN [None]
  - CHILLS [None]
  - DEPRESSION [None]
  - DIABETES MELLITUS INADEQUATE CONTROL [None]
  - DRUG ABUSER [None]
  - DRUG DEPENDENCE [None]
  - DRUG WITHDRAWAL SYNDROME [None]
  - DYSPNOEA [None]
  - EMOTIONAL DISTRESS [None]
  - FAECES DISCOLOURED [None]
  - FAT NECROSIS [None]
  - HAEMATEMESIS [None]
  - HETEROPHORIA [None]
  - HYPERTENSION [None]
  - HYPOAESTHESIA [None]
  - INADEQUATE ANALGESIA [None]
  - LIPOMA OF BREAST [None]
  - MASS [None]
  - MYASTHENIA GRAVIS [None]
  - OBESITY [None]
  - OBSESSIVE-COMPULSIVE DISORDER [None]
  - OEDEMA PERIPHERAL [None]
  - PAIN [None]
  - PARANOIA [None]
  - SCAR [None]
  - SOMNOLENCE [None]
  - STRABISMUS [None]
  - SWELLING [None]
  - THERAPEUTIC RESPONSE DECREASED [None]
  - THERAPY NON-RESPONDER [None]
  - WEIGHT INCREASED [None]
